FAERS Safety Report 10103376 (Version 3)
Quarter: 2014Q2

REPORT INFORMATION
  Report Type: Spontaneous
  Country: US (occurrence: US)
  Receive Date: 20140424
  Receipt Date: 20140620
  Transmission Date: 20141212
  Serious: No
  Sender: FDA-Public Use
  Company Number: US-BRISTOL-MYERS SQUIBB COMPANY-20355616

PATIENT
  Age: 82 Year
  Sex: Male
  Weight: 104.76 kg

DRUGS (7)
  1. ELIQUIS [Suspect]
     Indication: CEREBROVASCULAR ACCIDENT PROPHYLAXIS
     Dosage: 3 DOSES,?INTRPTD ON 20FEB14
     Route: 048
     Dates: start: 20140219, end: 20140220
  2. METFORMIN [Concomitant]
  3. FRUSEMIDE [Concomitant]
  4. VERAPAMIL [Concomitant]
  5. POTASSIUM CHLORIDE [Concomitant]
  6. IMMUNE GLOBULIN [Concomitant]
  7. SPIRIVA [Concomitant]

REACTIONS (1)
  - Haematuria [Recovered/Resolved]
